FAERS Safety Report 4883768-X (Version None)
Quarter: 2006Q1

REPORT INFORMATION
  Report Type: 
  Country: None (occurrence: None)
  Receive Date: 20060113
  Receipt Date: 20051229
  Transmission Date: 20060701
  Serious: Yes (Other)
  Sender: FDA-Public Use
  Company Number: US200601000126

PATIENT
  Age: 90 Year
  Sex: Female
  Weight: 43.1 kg

DRUGS (2)
  1. FORTEO [Suspect]
     Indication: OSTEOPOROSIS
     Dates: start: 20051109
  2. FORTEO [Concomitant]

REACTIONS (15)
  - AMNESIA [None]
  - CEREBROVASCULAR ACCIDENT [None]
  - CONDITION AGGRAVATED [None]
  - CONFUSIONAL STATE [None]
  - DEMENTIA [None]
  - DERMATITIS CONTACT [None]
  - EYELID DISORDER [None]
  - INJECTION SITE RASH [None]
  - PRURITUS [None]
  - RASH ERYTHEMATOUS [None]
  - RASH GENERALISED [None]
  - RASH MACULO-PAPULAR [None]
  - REFUSAL OF TREATMENT BY RELATIVE [None]
  - SWELLING [None]
  - TRANSIENT ISCHAEMIC ATTACK [None]
